FAERS Safety Report 6062275-5 (Version None)
Quarter: 2009Q1

REPORT INFORMATION
  Report Type: 
  Country: None (occurrence: None)
  Receive Date: 20090203
  Receipt Date: 20090126
  Transmission Date: 20090719
  Serious: Yes (Hospitalization)
  Sender: FDA-Public Use
  Company Number: BR-ASTRAZENECA-2009UW02380

PATIENT
  Age: 71 Year
  Sex: Female
  Weight: 58 kg

DRUGS (13)
  1. OMEPRAZOLE [Suspect]
     Indication: PROPHYLAXIS AGAINST GASTROINTESTINAL ULCER
     Route: 048
     Dates: start: 19990101
  2. SEROQUEL [Suspect]
     Indication: AGGRESSION
     Route: 048
     Dates: start: 20060101, end: 20081101
  3. SEROQUEL [Suspect]
     Indication: INSOMNIA
     Route: 048
     Dates: start: 20060101, end: 20081101
  4. SEROQUEL [Suspect]
     Dosage: 2 TABLETS / DAY
     Route: 048
     Dates: start: 20081101
  5. SEROQUEL [Suspect]
     Dosage: 2 TABLETS / DAY
     Route: 048
     Dates: start: 20081101
  6. ICTOS [Concomitant]
     Indication: HYPERTENSION
     Route: 048
     Dates: start: 19990101
  7. WARFARIN SODIUM [Concomitant]
     Indication: ANTICOAGULANT THERAPY
     Route: 048
     Dates: start: 19990101
  8. SPIRONOLACTONE [Concomitant]
     Indication: HYPERTENSION
     Route: 048
     Dates: start: 19990101
  9. TORLOS [Concomitant]
     Indication: HYPERTENSION
     Route: 048
     Dates: start: 19990101
  10. GINKGO BILOBA [Concomitant]
     Indication: LABYRINTHITIS
     Route: 048
     Dates: start: 19990101
  11. CALCIUM CARBONATE [Concomitant]
     Indication: OSTEOPOROSIS
     Route: 048
     Dates: start: 19990101
  12. ANCORON [Concomitant]
     Indication: ARRHYTHMIA
     Route: 048
     Dates: start: 19990101
  13. DIGOXIN [Concomitant]
     Indication: ARRHYTHMIA
     Route: 048
     Dates: start: 19990101

REACTIONS (6)
  - AGGRESSION [None]
  - CEREBROVASCULAR ACCIDENT [None]
  - DELUSION [None]
  - DEPRESSION [None]
  - HYPERCHOLESTEROLAEMIA [None]
  - INSOMNIA [None]
